FAERS Safety Report 10048312 (Version 1)
Quarter: 2014Q1

REPORT INFORMATION
  Report Type: Spontaneous
  Country: US (occurrence: US)
  Receive Date: 20140331
  Receipt Date: 20140331
  Transmission Date: 20141002
  Serious: Yes (Other)
  Sender: FDA-Public Use
  Company Number: US-GLAXOSMITHKLINE-A1066332A

PATIENT
  Sex: Female

DRUGS (1)
  1. POTIGA [Suspect]
     Indication: CONVULSION
     Dosage: 100MG THREE TIMES PER DAY
     Route: 048

REACTIONS (2)
  - Convulsion [Unknown]
  - Cognitive disorder [Unknown]
